FAERS Safety Report 8567508-9 (Version None)
Quarter: 2012Q3

REPORT INFORMATION
  Report Type: 
  Country: None (occurrence: None)
  Receive Date: 20120803
  Receipt Date: 20120720
  Transmission Date: 20120928
  Serious: Yes (Hospitalization)
  Sender: FDA-Public Use
  Company Number: US-ACTELION-A-US2012-68032

PATIENT
  Age: 59 Year
  Sex: Male

DRUGS (3)
  1. EPOPROSTENOL SODIUM [Suspect]
     Indication: PULMONARY ARTERIAL HYPERTENSION
     Dosage: 12 NG/KG, PER MIN
     Route: 042
     Dates: start: 20120220
  2. SPIRONOLACTONE [Concomitant]
  3. FUROSEMIDE [Concomitant]

REACTIONS (10)
  - AMMONIA ABNORMAL [None]
  - RENAL DISORDER [None]
  - BLOOD SODIUM ABNORMAL [None]
  - DEVICE RELATED INFECTION [None]
  - DYSPHAGIA [None]
  - ENTEROBACTER BACTERAEMIA [None]
  - ASTHENIA [None]
  - RENAL INJURY [None]
  - CHILLS [None]
  - FAILURE TO THRIVE [None]
